FAERS Safety Report 9599238 (Version 1)
Quarter: 2013Q4

REPORT INFORMATION
  Report Type: Spontaneous
  Country: US (occurrence: US)
  Receive Date: 20131004
  Receipt Date: 20131004
  Transmission Date: 20140711
  Serious: No
  Sender: FDA-Public Use
  Company Number: US-AMGEN-USASP2013028217

PATIENT
  Age: 38 Year
  Sex: Male
  Weight: 31.29 kg

DRUGS (1)
  1. ENBREL [Suspect]
     Indication: PSORIASIS
     Dosage: 50 MG, TWO TIMES A WEEK 72 TO 96 HOURS APART FOR THREE MONTHS THEN EVERY WEEK
     Route: 058
     Dates: start: 20100820

REACTIONS (1)
  - Hepatic enzyme increased [Recovered/Resolved]
